FAERS Safety Report 21141526 (Version 2)
Quarter: 2022Q3

REPORT INFORMATION
  Report Type: Spontaneous
  Country: PT (occurrence: PT)
  Receive Date: 20220728
  Receipt Date: 20220809
  Transmission Date: 20221026
  Serious: Yes (Death, Other)
  Sender: FDA-Public Use
  Company Number: None

PATIENT
  Age: 65 Year
  Sex: Male

DRUGS (11)
  1. PAXLOVID [Suspect]
     Active Substance: NIRMATRELVIR\RITONAVIR
     Indication: COVID-19 treatment
     Dosage: [PF-07321332 150 MG]/[RITONAVIR 100 MG]; 2X/DAY
     Route: 048
     Dates: start: 20220713, end: 20220715
  2. SIMVASTATIN [Suspect]
     Active Substance: SIMVASTATIN
     Dosage: UNK
  3. PREDNISOLONE [Concomitant]
     Active Substance: PREDNISOLONE
  4. INSULIN LISPRO [Concomitant]
     Active Substance: INSULIN LISPRO
  5. SITAGLIPTIN [Concomitant]
     Active Substance: SITAGLIPTIN
  6. PANTOPRAZOLE [Concomitant]
     Active Substance: PANTOPRAZOLE
  7. FLUTICASONE PROPIONATE [Concomitant]
     Active Substance: FLUTICASONE PROPIONATE
  8. INSULIN GLARGINE [Concomitant]
     Active Substance: INSULIN GLARGINE
  9. MONTELUKAST SODIUM [Concomitant]
     Active Substance: MONTELUKAST SODIUM
  10. RINIALER [Concomitant]
  11. AMLODIPINE AND VALSARTAN [Concomitant]
     Active Substance: AMLODIPINE\VALSARTAN

REACTIONS (3)
  - Pancreatitis acute [Fatal]
  - Cardio-respiratory arrest [Fatal]
  - Contraindicated product administered [Unknown]

NARRATIVE: CASE EVENT DATE: 20220715
